FAERS Safety Report 11995251 (Version 1)
Quarter: 2016Q1

REPORT INFORMATION
  Report Type: Spontaneous
  Country: US (occurrence: US)
  Receive Date: 20160203
  Receipt Date: 20160203
  Transmission Date: 20160526
  Serious: Yes (Other)
  Sender: FDA-Public Use
  Company Number: US-CIPLA LTD.-2016US00612

PATIENT

DRUGS (5)
  1. MELPHALAN [Suspect]
     Active Substance: MELPHALAN
     Dosage: 5 MG, UNK
  2. CARBOPLATIN. [Suspect]
     Active Substance: CARBOPLATIN
     Indication: RETINOBLASTOMA
     Dosage: 30 MG, UNK
     Route: 013
  3. MELPHALAN [Suspect]
     Active Substance: MELPHALAN
     Dosage: 7.5 MG, UNK
  4. MELPHALAN [Suspect]
     Active Substance: MELPHALAN
     Indication: RETINOBLASTOMA
     Dosage: 3 MG, UNK
     Route: 013
  5. TOPOTECAN [Suspect]
     Active Substance: TOPOTECAN\TOPOTECAN HYDROCHLORIDE
     Indication: RETINOBLASTOMA
     Dosage: 1 MG, UNK
     Route: 013

REACTIONS (1)
  - Retinal vascular disorder [Unknown]
